FAERS Safety Report 17825737 (Version 1)
Quarter: 2020Q2

REPORT INFORMATION
  Report Type: Spontaneous
  Country: US (occurrence: US)
  Receive Date: 20200526
  Receipt Date: 20200526
  Transmission Date: 20200714
  Serious: Yes (Hospitalization)
  Sender: FDA-Public Use
  Company Number: US-TEVA-2020-US-1239297

PATIENT
  Age: 16 Year
  Sex: Male

DRUGS (3)
  1. HEPARIN [Concomitant]
     Active Substance: HEPARIN SODIUM
     Indication: ANTICOAGULANT THERAPY
     Route: 042
  2. PROPOFOL. [Suspect]
     Active Substance: PROPOFOL
     Dosage: (TOTAL DOSE OF BOLUS PLUS INFUSION: 3215 MG)
     Route: 041
  3. PROPOFOL. [Suspect]
     Active Substance: PROPOFOL
     Indication: ANAESTHESIA
     Dosage: (TOTAL DOSE OF BOLUS PLUS INFUSION: 3215 MG)
     Route: 040

REACTIONS (1)
  - Priapism [Recovered/Resolved]
